FAERS Safety Report 14045062 (Version 1)
Quarter: 2017Q4

REPORT INFORMATION
  Report Type: Spontaneous
  Country: US (occurrence: US)
  Receive Date: 20171004
  Receipt Date: 20171004
  Transmission Date: 20180321
  Serious: No
  Sender: FDA-Public Use
  Company Number: None

PATIENT

DRUGS (2)
  1. MEDIQUE (IBUPROFEN) [Suspect]
     Active Substance: IBUPROFEN
     Route: 048
     Dates: start: 20171003, end: 20171004
  2. IBUPROPHIN [Concomitant]

REACTIONS (1)
  - Product packaging confusion [None]

NARRATIVE: CASE EVENT DATE: 20171004
